FAERS Safety Report 5856731-X (Version None)
Quarter: 2008Q3

REPORT INFORMATION
  Report Type: 
  Country: None (occurrence: None)
  Receive Date: 20080821
  Receipt Date: 20080806
  Transmission Date: 20090109
  Serious: Yes (Hospitalization)
  Sender: FDA-Public Use
  Company Number: 230621J08CAN

PATIENT
  Age: 56 Year
  Sex: Male

DRUGS (2)
  1. REBIF [Suspect]
     Dosage: 44 MCG
     Dates: start: 20000117, end: 20080601
  2. REBIF [Suspect]
     Dosage: 44 MCG
     Dates: start: 20080728

REACTIONS (1)
  - CHOLELITHIASIS [None]
